FAERS Safety Report 7134787 (Version 6)
Quarter: 2021Q4

REPORT INFORMATION
  Report Type: Spontaneous
  Country: GB (occurrence: GB)
  Receive Date: 20090918
  Receipt Date: 20211215
  Transmission Date: 20220303
  Serious: Yes (Congenital Anomaly, Other)
  Sender: FDA-Public Use
  Company Number: GB-MHRA-ADR 20171120

PATIENT
  Age: 3 Month
  Sex: Female
  Weight: 3.328 kg

DRUGS (1)
  1. CIPROFLOXACIN HYDROCHLORIDE [Suspect]
     Active Substance: CIPROFLOXACIN HYDROCHLORIDE
     Indication: Foetal exposure during pregnancy
     Dosage: MATERNAL DOSE : 250 MG, BID
     Route: 064
     Dates: start: 20070215, end: 20070219

REACTIONS (2)
  - Abnormal palmar/plantar creases [Unknown]
  - Foetal exposure during pregnancy [Not Recovered/Not Resolved]
